FAERS Safety Report 7983254-4 (Version None)
Quarter: 2011Q4

REPORT INFORMATION
  Report Type: 
  Country: None (occurrence: None)
  Receive Date: 20111215
  Receipt Date: 20111212
  Transmission Date: 20120403
  Serious: Yes (Other)
  Sender: FDA-Public Use
  Company Number: PHHY2011AR108678

PATIENT
  Sex: Female

DRUGS (2)
  1. DIOVAN [Suspect]
     Indication: HYPERTENSION
     Dosage: 80 MG, 01 TABLET DAILY
  2. VENORUTON INTENS [Concomitant]

REACTIONS (2)
  - MOVEMENT DISORDER [None]
  - CEREBROVASCULAR ACCIDENT [None]
